FAERS Safety Report 26038267 (Version 1)
Quarter: 2025Q4

REPORT INFORMATION
  Report Type: Report from Study
  Country: US (occurrence: US)
  Receive Date: 20251113
  Receipt Date: 20251113
  Transmission Date: 20260117
  Serious: Yes (Hospitalization)
  Sender: ABBVIE
  Company Number: US-ABBVIE-6537919

PATIENT
  Age: 65 Year
  Sex: Male

DRUGS (1)
  1. CREON [Suspect]
     Active Substance: PANCRELIPASE AMYLASE\PANCRELIPASE LIPASE\PANCRELIPASE PROTEASE
     Indication: Pancreatic failure
     Route: 048
     Dates: start: 202510

REACTIONS (14)
  - Fatigue [Unknown]
  - Blood glucose fluctuation [Unknown]
  - Frequent bowel movements [Unknown]
  - Drug ineffective [Unknown]
  - Constipation [Unknown]
  - Abdominal pain upper [Unknown]
  - Feeling abnormal [Unknown]
  - Dizziness [Unknown]
  - Oropharyngeal pain [Unknown]
  - Cough [Unknown]
  - Product quality issue [Unknown]
  - Tremor [Unknown]
  - Flatulence [Unknown]
  - Vomiting [Unknown]

NARRATIVE: CASE EVENT DATE: 20250101
